FAERS Safety Report 20692663 (Version 2)
Quarter: 2023Q1

REPORT INFORMATION
  Report Type: Spontaneous
  Country: US (occurrence: None)
  Receive Date: 20220409
  Receipt Date: 20230117
  Transmission Date: 20230418
  Serious: Yes (Other)
  Sender: FDA-Public Use
  Company Number: 2018SF13505

PATIENT
  Age: 31723 Day
  Sex: Female
  Weight: 95.3 kg

DRUGS (53)
  1. PRILOSEC [Suspect]
     Active Substance: OMEPRAZOLE MAGNESIUM
     Indication: Gastrooesophageal reflux disease
     Dosage: GENERIC
     Route: 048
     Dates: start: 20050101, end: 20170101
  2. PRILOSEC [Suspect]
     Active Substance: OMEPRAZOLE MAGNESIUM
     Indication: Gastrooesophageal reflux disease
     Dosage: GENERIC
     Route: 065
     Dates: start: 20171207
  3. DEXILANT [Suspect]
     Active Substance: DEXLANSOPRAZOLE
     Indication: Gastrooesophageal reflux disease
     Route: 065
     Dates: start: 20100101, end: 20171231
  4. DEXILANT [Suspect]
     Active Substance: DEXLANSOPRAZOLE
     Indication: Gastrooesophageal reflux disease
     Route: 065
     Dates: start: 2010, end: 2017
  5. PROTONIX [Suspect]
     Active Substance: PANTOPRAZOLE SODIUM
     Indication: Gastrooesophageal reflux disease
     Route: 065
     Dates: start: 20050101, end: 20171231
  6. PROTONIX [Suspect]
     Active Substance: PANTOPRAZOLE SODIUM
     Indication: Gastrooesophageal reflux disease
     Dosage: GENERIC
     Route: 065
     Dates: start: 20170510, end: 20171206
  7. PROTONIX [Suspect]
     Active Substance: PANTOPRAZOLE SODIUM
     Indication: Gastrooesophageal reflux disease
     Route: 065
     Dates: start: 20090118
  8. ATORVASTATIN [Concomitant]
     Active Substance: ATORVASTATIN
  9. LEUCINE/VALINE/CALCITONIN/PHENYLALANINE/METHIONINE/LYSINE/CALCIUM FLUO [Concomitant]
  10. ASPIRIN [Concomitant]
     Active Substance: ASPIRIN
  11. LISINOPRIL [Concomitant]
     Active Substance: LISINOPRIL
  12. APLISOL [Concomitant]
     Active Substance: TUBERCULIN PURIFIED PROTEIN DERIVATIVE
  13. SPIRIVA [Concomitant]
     Active Substance: TIOTROPIUM BROMIDE MONOHYDRATE
     Indication: Asthma
     Dates: start: 20131220, end: 20180307
  14. ZOSYN [Concomitant]
     Active Substance: PIPERACILLIN SODIUM\TAZOBACTAM SODIUM
  15. METOPROLOL [Concomitant]
     Active Substance: METOPROLOL
     Indication: Hypertension
     Dates: start: 20130826
  16. METOLAZONE [Concomitant]
     Active Substance: METOLAZONE
  17. APIXABAN [Concomitant]
     Active Substance: APIXABAN
  18. PEPERACILLIN [Concomitant]
  19. NOREPINEPHRINE [Concomitant]
     Active Substance: NOREPINEPHRINE
  20. SODIUM CHLORIDE [Concomitant]
     Active Substance: SODIUM CHLORIDE
  21. TORSEMIDE [Concomitant]
     Active Substance: TORSEMIDE
  22. GUAIFENESIN [Concomitant]
     Active Substance: GUAIFENESIN
  23. LACTULOSE [Concomitant]
     Active Substance: LACTULOSE
  24. NYSTATIN [Concomitant]
     Active Substance: NYSTATIN
  25. PROAIR HFA [Concomitant]
     Active Substance: ALBUTEROL SULFATE
     Indication: Wheezing
  26. MIDODRINE [Concomitant]
     Active Substance: MIDODRINE
  27. ROCEPHIN [Concomitant]
     Active Substance: CEFTRIAXONE SODIUM
  28. INCRUSE ELLIPTA [Concomitant]
     Active Substance: UMECLIDINIUM BROMIDE
  29. CARVEDILOL [Concomitant]
     Active Substance: CARVEDILOL
  30. IPRATROPIUM [Concomitant]
     Active Substance: IPRATROPIUM
  31. CALCIUM CARBONATE [Concomitant]
     Active Substance: CALCIUM CARBONATE
  32. CYCLOBENZAPRINE [Concomitant]
     Active Substance: CYCLOBENZAPRINE
  33. DULOXETINE [Concomitant]
     Active Substance: DULOXETINE
  34. HYDROCORTISONE [Concomitant]
     Active Substance: HYDROCORTISONE
  35. DOCUSASTE SODIUM [Concomitant]
  36. SPIRONOLACTONE [Concomitant]
     Active Substance: SPIRONOLACTONE
  37. WARFARIN [Concomitant]
     Active Substance: WARFARIN
  38. FLUTICASONE [Concomitant]
     Active Substance: FLUTICASONE
  39. ADVAIR DSKUS [Concomitant]
  40. CHLORHEXIDINE [Concomitant]
     Active Substance: CHLORHEXIDINE
  41. SYMBICORT [Concomitant]
     Active Substance: BUDESONIDE\FORMOTEROL FUMARATE DIHYDRATE
  42. CEPHALEXIN [Concomitant]
     Active Substance: CEPHALEXIN
  43. PREDNISONE [Concomitant]
     Active Substance: PREDNISONE
  44. AMIODARONE [Concomitant]
     Active Substance: AMIODARONE
  45. LASIX [Concomitant]
     Active Substance: FUROSEMIDE
     Indication: Cardiac failure chronic
     Dates: start: 20130826
  46. TRAMADOL [Concomitant]
     Active Substance: TRAMADOL
     Indication: Analgesic therapy
     Dates: start: 20130826, end: 20150523
  47. TYLENOL [Concomitant]
     Active Substance: ACETAMINOPHEN
     Indication: Chills
     Dates: start: 20131119
  48. TYLENOL [Concomitant]
     Active Substance: ACETAMINOPHEN
     Indication: Pyrexia
     Dates: start: 20131119
  49. POTASSIUM CHLORIDE [Concomitant]
     Active Substance: POTASSIUM CHLORIDE
     Indication: Hypokalaemia
     Dates: start: 20131209
  50. LOVENOX [Concomitant]
     Active Substance: ENOXAPARIN SODIUM
     Dates: start: 20100201
  51. VITAMIN D [Concomitant]
     Active Substance: VITAMIN D NOS
     Dates: start: 20100201
  52. NIFEDIPINE [Concomitant]
     Active Substance: NIFEDIPINE
     Dates: start: 20100201
  53. SIMVASTATIN [Concomitant]
     Active Substance: SIMVASTATIN
     Dates: start: 20100201

REACTIONS (9)
  - Chronic kidney disease [Not Recovered/Not Resolved]
  - Renal injury [Unknown]
  - Acute kidney injury [Not Recovered/Not Resolved]
  - Renal failure [Not Recovered/Not Resolved]
  - End stage renal disease [Unknown]
  - Nephrogenic anaemia [Unknown]
  - Metabolic acidosis [Unknown]
  - Renal hypertension [Unknown]
  - Gastrooesophageal reflux disease [Not Recovered/Not Resolved]

NARRATIVE: CASE EVENT DATE: 20140901
